FAERS Safety Report 6296651-2 (Version None)
Quarter: 2009Q3

REPORT INFORMATION
  Report Type: 
  Country: None (occurrence: None)
  Receive Date: 20090804
  Receipt Date: 20090730
  Transmission Date: 20100115
  Serious: Yes (Hospitalization)
  Sender: FDA-Public Use
  Company Number: US-PFIZER INC-2009248340

PATIENT

DRUGS (1)
  1. GEODON [Suspect]
     Dosage: 80 MG, 2X/DAY

REACTIONS (1)
  - ILL-DEFINED DISORDER [None]
